FAERS Safety Report 7254714-9 (Version None)
Quarter: 2011Q1

REPORT INFORMATION
  Report Type: 
  Country: None (occurrence: None)
  Receive Date: 20110129
  Receipt Date: 20100419
  Transmission Date: 20110831
  Serious: No
  Sender: FDA-Public Use
  Company Number: US-ABBOTT-10P-163-0639833-00

PATIENT
  Sex: Female
  Weight: 59.02 kg

DRUGS (3)
  1. HUMIRA [Suspect]
     Dates: start: 20090401, end: 20091001
  2. HUMIRA [Suspect]
     Dates: start: 20090401
  3. HUMIRA [Suspect]
     Indication: PSORIASIS
     Dates: start: 20100411

REACTIONS (1)
  - INJECTION SITE REACTION [None]
